FAERS Safety Report 19551948 (Version 2)
Quarter: 2021Q3

REPORT INFORMATION
  Report Type: Spontaneous
  Country: US (occurrence: US)
  Receive Date: 20210715
  Receipt Date: 20210802
  Transmission Date: 20211014
  Serious: No
  Sender: FDA-Public Use
  Company Number: US-BIOGEN-2021BI01026358

PATIENT
  Age: 57 Year
  Sex: Female

DRUGS (1)
  1. VUMERITY [Suspect]
     Active Substance: DIROXIMEL FUMARATE
     Indication: MULTIPLE SCLEROSIS
     Dosage: FOR 1 WEEK, THEN 462 MG BID THEREAFTER
     Route: 048
     Dates: start: 20210628, end: 20210629

REACTIONS (5)
  - Pruritus [Unknown]
  - Dizziness [Unknown]
  - Gait inability [Recovered/Resolved]
  - Disturbance in attention [Recovered/Resolved]
  - Feeling hot [Recovered/Resolved]

NARRATIVE: CASE EVENT DATE: 20210628
